FAERS Safety Report 4555607-8 (Version None)
Quarter: 2005Q1

REPORT INFORMATION
  Report Type: 
  Country: None (occurrence: None)
  Receive Date: 20050118
  Receipt Date: 20050103
  Transmission Date: 20050727
  Serious: Yes (Death, Hospitalization)
  Sender: FDA-Public Use
  Company Number: GXKR2005IT00442

PATIENT
  Age: 59 Year
  Sex: Male

DRUGS (3)
  1. CEFTRIAXONE (NGX) (CEFTRIAXONE) [Suspect]
     Indication: PNEUMONIA
  2. RIFAMPICIN [Suspect]
     Indication: PNEUMONIA LEGIONELLA
  3. CLARITHROMYCIN [Suspect]
     Indication: PNEUMONIA LEGIONELLA

REACTIONS (4)
  - DISEASE PROGRESSION [None]
  - LYMPHOPENIA [None]
  - NEUTROPHILIA [None]
  - RESPIRATORY FAILURE [None]
